FAERS Safety Report 7517441-6 (Version None)
Quarter: 2011Q2

REPORT INFORMATION
  Report Type: 
  Country: None (occurrence: None)
  Receive Date: 20110601
  Receipt Date: 20110527
  Transmission Date: 20111010
  Serious: Yes (Other)
  Sender: FDA-Public Use
  Company Number: AU-PFIZER INC-2011093375

PATIENT
  Age: 30 Year
  Sex: Female

DRUGS (5)
  1. PRISTIQ [Suspect]
     Dosage: 50 MG, UNK
  2. SERTRALINE HYDROCHLORIDE [Suspect]
     Dosage: 50 MG, UNK
  3. PRISTIQ [Suspect]
     Dosage: 100 MG, UNK
  4. SERTRALINE HYDROCHLORIDE [Suspect]
     Dosage: 25 MG, UNK
  5. PRISTIQ [Suspect]
     Indication: DEPRESSION
     Dosage: 200 MG, UNK
     Route: 048
     Dates: end: 20110422

REACTIONS (7)
  - MIGRAINE [None]
  - DIARRHOEA [None]
  - SOMNOLENCE [None]
  - VISION BLURRED [None]
  - DRUG WITHDRAWAL SYNDROME [None]
  - NAUSEA [None]
  - DIZZINESS POSTURAL [None]
